FAERS Safety Report 5257388-1 (Version None)
Quarter: 2007Q1

REPORT INFORMATION
  Report Type: 
  Country: None (occurrence: None)
  Receive Date: 20070307
  Receipt Date: 20060712
  Transmission Date: 20070707
  Serious: No
  Sender: FDA-Public Use
  Company Number: US-GLAXOSMITHKLINE-A0612039A

PATIENT
  Age: 51 Year
  Sex: Female

DRUGS (6)
  1. REQUIP [Suspect]
     Indication: RESTLESS LEGS SYNDROME
     Dosage: .25MG PER DAY
     Route: 048
     Dates: start: 20060710
  2. LEVAQUIN [Suspect]
     Indication: INFECTION
     Dates: start: 20060610
  3. CLONIDINE [Concomitant]
  4. COLCHICINE [Concomitant]
  5. TALACEN [Concomitant]
  6. PHENERGAN HCL [Concomitant]

REACTIONS (5)
  - DRUG INTERACTION [None]
  - ENERGY INCREASED [None]
  - HEART RATE INCREASED [None]
  - INSOMNIA [None]
  - MIOSIS [None]
